FAERS Safety Report 9836603 (Version 1)
Quarter: 2013Q4

REPORT INFORMATION
  Report Type: Spontaneous
  Country: US (occurrence: None)
  Receive Date: 20131120
  Receipt Date: 20131120
  Transmission Date: 20140711
  Serious: No
  Sender: FDA-Public Use
  Company Number: 1000049461

PATIENT
  Age: 67 Year
  Sex: Male

DRUGS (9)
  1. VIIBRYD (VILAZODONE HYDROCHLORIDE) (TABLETS) [Suspect]
     Dosage: 40 MG (40 MG, 1 IN 1 D), ORAL
     Route: 048
  2. ASPIRIN (ACETYLSALICYLIC ACID) (ACETYLSALICYLIC ACID) [Concomitant]
  3. ALLOPURINOL (ALLOPURINOL) (ALLOPURINOL) [Concomitant]
  4. LEVOQUIN (LEVOFLOXACIN) (LEVOFLOXACIN) [Concomitant]
  5. SYNTHROID (LEVOTHYROXINE SODIUM) (LEVOTHYROXINE SODIUM) [Concomitant]
  6. HYDROCODONE (HYDROCODONE) (HYDROCODONE) [Concomitant]
  7. GUAIFENESIN (GUAIFENESIN) (GUAIFENESIN) [Concomitant]
  8. METOPROLOL (METOPROLOL) (METOPROLOL) [Concomitant]
  9. PRAVASTATIN (PRAVASTATIN0 (PRAVASTATIN) [Concomitant]

REACTIONS (1)
  - Hallucination [None]
